FAERS Safety Report 5678110-0 (Version None)
Quarter: 2008Q1

REPORT INFORMATION
  Report Type: 
  Country: None (occurrence: None)
  Receive Date: 20080319
  Receipt Date: 20080310
  Transmission Date: 20080703
  Serious: Yes (Other)
  Sender: FDA-Public Use
  Company Number: 08H-028-0313998-00

PATIENT
  Age: 27 Year
  Sex: Male

DRUGS (9)
  1. MEPERIDINE HCL [Suspect]
     Indication: CHILLS
     Dosage: 25 MG, TWICE, INTRAVENOUS
     Route: 042
  2. LINEZOLID [Suspect]
     Indication: ENTEROCOCCAL SEPSIS
  3. LINEZOLID [Suspect]
     Indication: PATHOGEN RESISTANCE
  4. CYTARABINE [Concomitant]
  5. DAUNORUBICIN HCL [Concomitant]
  6. AMBISOME [Concomitant]
  7. TIMENTIN (TIMENTIN) [Concomitant]
  8. TOBRAMYCIN [Concomitant]
  9. VANCOMYCIN [Concomitant]

REACTIONS (2)
  - DRUG INTERACTION [None]
  - SEROTONIN SYNDROME [None]
